FAERS Safety Report 10329171 (Version 2)
Quarter: 2014Q4

REPORT INFORMATION
  Report Type: Spontaneous
  Country: US (occurrence: US)
  Receive Date: 20140721
  Receipt Date: 20141104
  Transmission Date: 20150528
  Serious: Yes (Other)
  Sender: FDA-Public Use
  Company Number: US-PFIZER INC-2014197198

PATIENT
  Age: 41 Year
  Sex: Male

DRUGS (2)
  1. CHANTIX [Suspect]
     Active Substance: VARENICLINE TARTRATE
     Dosage: UNK
     Dates: start: 2005, end: 2010
  2. CHANTIX [Suspect]
     Active Substance: VARENICLINE TARTRATE
     Dosage: STARTING MONTH BOX
     Dates: start: 20030914

REACTIONS (10)
  - Suicidal ideation [Unknown]
  - Anger [Unknown]
  - Generalised anxiety disorder [Unknown]
  - Depression [Unknown]
  - Intentional self-injury [Unknown]
  - Abnormal behaviour [Unknown]
  - Major depression [Unknown]
  - Violence-related symptom [Unknown]
  - Aggression [Unknown]
  - Emotional disorder [Unknown]
